FAERS Safety Report 9425984 (Version 3)
Quarter: 2013Q3

REPORT INFORMATION
  Report Type: Spontaneous
  Country: DE (occurrence: DE)
  Receive Date: 20130730
  Receipt Date: 20130809
  Transmission Date: 20140515
  Serious: Yes (Other)
  Sender: FDA-Public Use
  Company Number: DE-ABBOTT-13X-062-1125480-00

PATIENT
  Age: 73 Year
  Sex: Male

DRUGS (2)
  1. VALPROIC ACID [Suspect]
     Indication: PRODUCT USED FOR UNKNOWN INDICATION
     Dosage: UP TO 1200 MG/DAY
  2. AMITRIPTYLINE HYDROCHLORIDE [Interacting]
     Indication: DEPRESSION

REACTIONS (13)
  - Delirium [Unknown]
  - Drug interaction [Unknown]
  - Drug level increased [Unknown]
  - Somnolence [Unknown]
  - Disorientation [Unknown]
  - Agitation [Unknown]
  - Muscle rigidity [Unknown]
  - Ataxia [Unknown]
  - Tremor [Unknown]
  - Dysarthria [Unknown]
  - Hyperhidrosis [Unknown]
  - Dizziness [Unknown]
  - Constipation [Unknown]
